FAERS Safety Report 6444687-0 (Version None)
Quarter: 2009Q4

REPORT INFORMATION
  Report Type: 
  Country: None (occurrence: None)
  Receive Date: 20091118
  Receipt Date: 20091111
  Transmission Date: 20100525
  Serious: Yes (Death, Congenital Anomaly)
  Sender: FDA-Public Use
  Company Number: A0681025A

PATIENT
  Weight: 0.9 kg

DRUGS (5)
  1. PAXIL [Suspect]
     Indication: DEPRESSION
     Dosage: 20MG PER DAY
     Dates: start: 19980501, end: 19990101
  2. VITAMIN TAB [Concomitant]
  3. INSULIN [Concomitant]
  4. ZOLOFT [Concomitant]
  5. TRAZODONE HCL [Concomitant]

REACTIONS (3)
  - APLASIA [None]
  - CONGENITAL ANOMALY [None]
  - DRUG EXPOSURE DURING PREGNANCY [None]
